FAERS Safety Report 23244112 (Version 1)
Quarter: 2023Q4

REPORT INFORMATION
  Report Type: Spontaneous
  Country: CA (occurrence: CA)
  Receive Date: 20231130
  Receipt Date: 20231130
  Transmission Date: 20240110
  Serious: Yes (Other)
  Sender: FDA-Public Use
  Company Number: CA-ENDO-CASE-0047065

PATIENT
  Sex: Male

DRUGS (3)
  1. PERCOCET [Suspect]
     Active Substance: ACETAMINOPHEN\OXYCODONE HYDROCHLORIDE
  2. BELBUCA [Suspect]
     Active Substance: BUPRENORPHINE HYDROCHLORIDE
  3. DEPODUR [Suspect]
     Active Substance: MORPHINE SULFATE

REACTIONS (1)
  - Dependence [Unknown]
